FAERS Safety Report 5216667-4 (Version None)
Quarter: 2006Q4

REPORT INFORMATION
  Report Type: 
  Country: None (occurrence: None)
  Receive Date: 20061130
  Receipt Date: 20060816
  Transmission Date: 20070319
  Serious: Yes (Other)
  Sender: FDA-Public Use
  Company Number: US_0511123637

PATIENT
  Age: 55 Year
  Sex: Female
  Weight: 59.1 kg

DRUGS (3)
  1. ZYPREXA [Suspect]
     Indication: BIPOLAR DISORDER
     Dosage: 30 MG
     Dates: start: 19960101, end: 20051001
  2. CORTICOSTEROID NOS (CORTICOSTEROID NOS) [Concomitant]
  3. ARIPIPRAZOLE [Concomitant]

REACTIONS (9)
  - BILIARY TRACT DISORDER [None]
  - BLOOD CHOLESTEROL INCREASED [None]
  - BLOOD TRIGLYCERIDES INCREASED [None]
  - DIABETES MELLITUS NON-INSULIN-DEPENDENT [None]
  - HYPERTENSION [None]
  - KETONURIA [None]
  - METABOLIC DISORDER [None]
  - OBESITY [None]
  - WEIGHT INCREASED [None]
